FAERS Safety Report 10162932 (Version 3)
Quarter: 2019Q1

REPORT INFORMATION
  Report Type: Spontaneous
  Country: US (occurrence: US)
  Receive Date: 20140509
  Receipt Date: 20190129
  Transmission Date: 20190417
  Serious: No
  Sender: FDA-Public Use
  Company Number: US-PFIZER INC-2014121811

PATIENT
  Age: 83 Year
  Sex: Female

DRUGS (13)
  1. TORADOL [Suspect]
     Active Substance: KETOROLAC TROMETHAMINE
     Dosage: UNK
  2. TEQUIN [Suspect]
     Active Substance: GATIFLOXACIN
     Dosage: UNK
  3. MEVACOR [Suspect]
     Active Substance: LOVASTATIN
     Dosage: UNK
  4. CELESTONE [Suspect]
     Active Substance: BETAMETHASONE
     Dosage: UNK
  5. VIOXX [Suspect]
     Active Substance: ROFECOXIB
     Dosage: UNK
  6. CORTISONE ACETATE. [Suspect]
     Active Substance: CORTISONE ACETATE
     Dosage: UNK
  7. MONISTAT [Suspect]
     Active Substance: MICONAZOLE NITRATE
     Dosage: UNK
  8. PROCARDIA [Suspect]
     Active Substance: NIFEDIPINE
     Dosage: UNK
  9. NITROFURANTOIN. [Suspect]
     Active Substance: NITROFURANTOIN
     Dosage: UNK
  10. DITROPAN [Suspect]
     Active Substance: OXYBUTYNIN CHLORIDE
     Dosage: UNK
  11. CIPRO [Suspect]
     Active Substance: CIPROFLOXACIN HYDROCHLORIDE
     Dosage: UNK
  12. LASIX [Suspect]
     Active Substance: FUROSEMIDE
     Dosage: UNK
  13. ALTACE [Suspect]
     Active Substance: RAMIPRIL
     Dosage: UNK

REACTIONS (1)
  - Drug hypersensitivity [Not Recovered/Not Resolved]
